FAERS Safety Report 5958843-9 (Version None)
Quarter: 2008Q4

REPORT INFORMATION
  Report Type: 
  Country: None (occurrence: None)
  Receive Date: 20081117
  Receipt Date: 20081105
  Transmission Date: 20090506
  Serious: Yes (Other)
  Sender: FDA-Public Use
  Company Number: GXKR2008GB10586

PATIENT
  Age: 44 Year
  Sex: Female
  Weight: 160 kg

DRUGS (10)
  1. WARFARIN SODIUM [Suspect]
     Indication: PULMONARY EMBOLISM
     Dosage: 7 MG, ORAL
     Route: 048
     Dates: start: 20080701, end: 20081021
  2. KALMS(ASAFETIDA, FERULA ASSAFOETIDA, GENTIAN, GENTIANA LUTEA ROOT, HUM [Suspect]
     Indication: STRESS
     Dosage: 2 DF, TID, ORAL
     Route: 048
     Dates: start: 20081001, end: 20081020
  3. ATORVASTATIN CALCIUM [Concomitant]
  4. CO-AMILOFRUSE (AMILORIDE HYDROCHLORIDE, FUROSEMIDE) [Concomitant]
  5. LANSOPRAZOLE [Concomitant]
  6. MELOXICAM [Concomitant]
  7. MIRTAZAPINE [Concomitant]
  8. THIAMINE (THIAMINE) [Concomitant]
  9. VITAMIN B (NO INGREDIENTS/SUBSTANCES) [Concomitant]
  10. ALCOHOL (ETHANOL) [Concomitant]

REACTIONS (3)
  - ALCOHOL USE [None]
  - DRUG INTERACTION [None]
  - INTERNATIONAL NORMALISED RATIO INCREASED [None]
